FAERS Safety Report 5112467-4 (Version None)
Quarter: 2006Q3

REPORT INFORMATION
  Report Type: 
  Country: None (occurrence: None)
  Receive Date: 20060919
  Receipt Date: 20060907
  Transmission Date: 20061208
  Serious: Yes (Life-Threatening)
  Sender: FDA-Public Use
  Company Number: 2006109581

PATIENT
  Age: 91 Year
  Sex: Male
  Weight: 43 kg

DRUGS (4)
  1. NORVASC [Suspect]
     Indication: HYPERTENSION
     Dosage: 5 MG (5 MG, FREQUENCY:  QD), ORAL
     Route: 048
     Dates: start: 20030901, end: 20060703
  2. FAMOTIDINE [Suspect]
     Indication: GASTRIC ULCER
     Dosage: 20 MG (20 MG, FREQUENCY:  QD), ORAL
     Route: 048
     Dates: start: 20031101, end: 20050704
  3. DIOVAN [Concomitant]
  4. SELBEX (TEPRENONE) [Concomitant]

REACTIONS (1)
  - ATRIOVENTRICULAR BLOCK SECOND DEGREE [None]
